FAERS Safety Report 8097664-0 (Version None)
Quarter: 2012Q1

REPORT INFORMATION
  Report Type: 
  Country: None (occurrence: None)
  Receive Date: 20120128
  Receipt Date: 20110708
  Transmission Date: 20120608
  Serious: No
  Sender: FDA-Public Use
  Company Number: US-ABBOTT-11P-163-0838765-00

PATIENT
  Age: 60 Year
  Sex: Female

DRUGS (2)
  1. HUMIRA [Suspect]
     Indication: RHEUMATOID ARTHRITIS
     Route: 058
     Dates: start: 20080101, end: 20110101
  2. ARAVA [Concomitant]
     Indication: RHEUMATOID ARTHRITIS

REACTIONS (2)
  - MALAISE [None]
  - STAPHYLOCOCCAL INFECTION [None]
